FAERS Safety Report 18585220 (Version 2)
Quarter: 2020Q4

REPORT INFORMATION
  Report Type: Spontaneous
  Country: US (occurrence: US)
  Receive Date: 20201207
  Receipt Date: 20201223
  Transmission Date: 20210114
  Serious: Yes (Other)
  Sender: FDA-Public Use
  Company Number: US-BAYER-2020-262453

PATIENT
  Age: 76 Year
  Sex: Male

DRUGS (2)
  1. ACETYLSALICYLIC ACID [Suspect]
     Active Substance: ASPIRIN
     Dosage: UNK
  2. APIXABAN [Suspect]
     Active Substance: APIXABAN

REACTIONS (3)
  - Gastrointestinal polyp haemorrhage [None]
  - Haematemesis [Recovered/Resolved]
  - Labelled drug-drug interaction medication error [None]
